FAERS Safety Report 7581059-X (Version None)
Quarter: 2011Q2

REPORT INFORMATION
  Report Type: 
  Country: None (occurrence: None)
  Receive Date: 20110622
  Receipt Date: 20110615
  Transmission Date: 20111010
  Serious: Yes (Death, Other)
  Sender: FDA-Public Use
  Company Number: LEO-2011-00133

PATIENT
  Age: 66 Year
  Sex: Male
  Weight: 70 kg

DRUGS (4)
  1. SIMVASTATIN [Concomitant]
  2. NEXIUM [Concomitant]
  3. INNOHEP [Suspect]
     Indication: VENA CAVA THROMBOSIS
     Dosage: 10000 IU (10000 IU, 1 IN 1 D), SUBCUTANEOUS
     Route: 058
     Dates: start: 20101119
  4. PLAVIX [Concomitant]

REACTIONS (4)
  - OFF LABEL USE [None]
  - INCORRECT PRODUCT STORAGE [None]
  - VENA CAVA THROMBOSIS [None]
  - DRUG INEFFECTIVE [None]
